FAERS Safety Report 9888949 (Version 2)
Quarter: 2014Q1

REPORT INFORMATION
  Report Type: Report from Study
  Country: NL (occurrence: NL)
  Receive Date: 20140211
  Receipt Date: 20140306
  Transmission Date: 20141002
  Serious: Yes (Hospitalization)
  Sender: FDA-Public Use
  Company Number: NL-GLAXOSMITHKLINE-B0967607A

PATIENT
  Age: 65 Year
  Sex: Female
  Weight: 70 kg

DRUGS (1)
  1. PAZOPANIB [Suspect]
     Indication: ENDOMETRIAL CANCER
     Dosage: 800MG PER DAY
     Route: 048
     Dates: start: 20140114

REACTIONS (1)
  - Vaginal fistula [Unknown]
